FAERS Safety Report 6316832-9 (Version None)
Quarter: 2009Q3

REPORT INFORMATION
  Report Type: 
  Country: None (occurrence: None)
  Receive Date: 20090820
  Receipt Date: 20090810
  Transmission Date: 20100115
  Serious: Yes (Disabling)
  Sender: FDA-Public Use
  Company Number: NO-ROCHE-649480

PATIENT
  Sex: Female

DRUGS (2)
  1. TAMIFLU [Suspect]
     Indication: INFLUENZA
     Route: 048
     Dates: start: 20090501, end: 20090501
  2. MAREVAN [Concomitant]
     Dosage: REPORTED AS THREE TABLETS PER DAY.
     Route: 048

REACTIONS (8)
  - ANXIETY [None]
  - BRONCHITIS [None]
  - DIARRHOEA [None]
  - NAUSEA [None]
  - SYNCOPE [None]
  - TREMOR [None]
  - VERTIGO [None]
  - VOMITING [None]
